FAERS Safety Report 15323317 (Version 4)
Quarter: 2021Q2

REPORT INFORMATION
  Report Type: Spontaneous
  Country: US (occurrence: US)
  Receive Date: 20180827
  Receipt Date: 20210524
  Transmission Date: 20210716
  Serious: No
  Sender: FDA-Public Use
  Company Number: US-PFIZER INC-2018132307

PATIENT
  Age: 6 Year
  Sex: Male
  Weight: 18.14 kg

DRUGS (3)
  1. GENOTROPIN [Suspect]
     Active Substance: SOMATROPIN
     Indication: CHARGE SYNDROME
     Dosage: 0.8 MG, DAILY
     Dates: start: 2011
  2. GENOTROPIN [Suspect]
     Active Substance: SOMATROPIN
     Indication: GROWTH HORMONE DEFICIENCY
     Dosage: 0.8 MG, 1X/DAY (ONCE DAILY)
     Dates: start: 2011
  3. GENOTROPIN [Suspect]
     Active Substance: SOMATROPIN
     Dosage: 1 MG, DAILY

REACTIONS (5)
  - Expired device used [Unknown]
  - Product dose omission issue [Unknown]
  - Device power source issue [Unknown]
  - Blood sodium increased [Unknown]
  - Off label use [Unknown]

NARRATIVE: CASE EVENT DATE: 20170421
